FAERS Safety Report 10889568 (Version 1)
Quarter: 2015Q1

REPORT INFORMATION
  Report Type: Spontaneous
  Country: US (occurrence: US)
  Receive Date: 20150305
  Receipt Date: 20150305
  Transmission Date: 20150721
  Serious: No
  Sender: FDA-Public Use
  Company Number: US-GLAXOSMITHKLINE-US2015029170

PATIENT
  Age: 59 Year
  Sex: Male

DRUGS (1)
  1. NICODERM CQ [Suspect]
     Active Substance: NICOTINE
     Indication: SMOKING CESSATION THERAPY
     Dosage: 21 MG, UNK
     Dates: start: 201502

REACTIONS (7)
  - Application site vesicles [Unknown]
  - Productive cough [Unknown]
  - Skin ulcer [Unknown]
  - Dysgeusia [Unknown]
  - Application site reaction [Unknown]
  - Application site pain [Unknown]
  - Application site pruritus [Unknown]
